FAERS Safety Report 4380863-9 (Version None)
Quarter: 2004Q2

REPORT INFORMATION
  Report Type: 
  Country: None (occurrence: None)
  Receive Date: 20040616
  Receipt Date: 20040510
  Transmission Date: 20050107
  Serious: No
  Sender: FDA-Public Use
  Company Number: 03P-167-0238469-00

PATIENT
  Age: 64 Year
  Sex: Female

DRUGS (3)
  1. VERAPAMIL [Suspect]
     Indication: HYPERTENSION
     Dosage: 240 MG, 2 IN 1 D, PER ORAL
     Route: 048
     Dates: start: 20010301
  2. TRANDOLAPRIL [Concomitant]
  3. HORMONE REPLACEMENT THERAPY [Concomitant]

REACTIONS (3)
  - ARTHROPATHY [None]
  - CATARACT [None]
  - CONSTIPATION [None]
